FAERS Safety Report 20465498 (Version 2)
Quarter: 2022Q2

REPORT INFORMATION
  Report Type: Spontaneous
  Country: US (occurrence: None)
  Receive Date: 20220212
  Receipt Date: 20220413
  Transmission Date: 20220720
  Serious: No
  Sender: FDA-Public Use
  Company Number: 2022A060881

PATIENT
  Age: 73 Year
  Sex: Male
  Weight: 73 kg

DRUGS (3)
  1. SYMBICORT [Suspect]
     Active Substance: BUDESONIDE\FORMOTEROL FUMARATE DIHYDRATE
     Indication: Chronic obstructive pulmonary disease
     Dosage: 160/4.5 TWO PUFFS TWICE EACH DAY
     Route: 055
     Dates: start: 20220105
  2. SYMBICORT [Suspect]
     Active Substance: BUDESONIDE\FORMOTEROL FUMARATE DIHYDRATE
     Indication: Emphysema
     Dosage: 160/4.5 TWO PUFFS TWICE EACH DAY
     Route: 055
     Dates: start: 20220105
  3. SYMBICORT [Suspect]
     Active Substance: BUDESONIDE\FORMOTEROL FUMARATE DIHYDRATE
     Indication: Asthma
     Dosage: 160/4.5 TWO PUFFS TWICE EACH DAY
     Route: 055
     Dates: start: 20220105

REACTIONS (4)
  - Symptom recurrence [Unknown]
  - Device malfunction [Unknown]
  - Intentional device misuse [Unknown]
  - Incorrect dose administered by device [Unknown]

NARRATIVE: CASE EVENT DATE: 20220101
